FAERS Safety Report 9769034 (Version 2)
Quarter: 2013Q4

REPORT INFORMATION
  Report Type: Spontaneous
  Country: CA (occurrence: None)
  Receive Date: 20131216
  Receipt Date: 20131223
  Transmission Date: 20140711
  Serious: Yes (Death, Hospitalization, Other)
  Sender: FDA-Public Use
  Company Number: CA-013963

PATIENT
  Age: 72 Year
  Sex: Male

DRUGS (7)
  1. FIRMAGON [Suspect]
     Indication: PROSTATE CANCER
     Dosage: 80 MG 1X/MONTH SUBCUTANEOUS
     Route: 058
     Dates: start: 20130801
  2. ASA [Concomitant]
  3. VIT D [Concomitant]
  4. MAGNESIUM [Concomitant]
  5. CALCIUM [Concomitant]
  6. CRESTOR [Concomitant]
  7. HYDROCHLOROTHIAZIDE [Concomitant]

REACTIONS (1)
  - Full blood count decreased [None]
